FAERS Safety Report 21840882 (Version 2)
Quarter: 2023Q1

REPORT INFORMATION
  Report Type: Other
  Country: IT (occurrence: None)
  Receive Date: 20230110
  Receipt Date: 20230119
  Transmission Date: 20230417
  Serious: Yes (Other)
  Sender: FDA-Public Use
  Company Number: IT-ROCHE-3249529

PATIENT
  Age: 9 Year
  Sex: Male
  Weight: 28 kg

DRUGS (1)
  1. EMICIZUMAB [Suspect]
     Active Substance: EMICIZUMAB
     Indication: Factor VIII deficiency
     Dosage: 3 MG/KG/W --} 1.5 MG/KG/W
     Route: 065
     Dates: start: 20221129

REACTIONS (4)
  - Urticaria [Recovered/Resolved]
  - Rash [Unknown]
  - Injection site urticaria [Recovered/Resolved]
  - Injection site pruritus [Recovered/Resolved]

NARRATIVE: CASE EVENT DATE: 20221207
